FAERS Safety Report 11831401 (Version 5)
Quarter: 2017Q1

REPORT INFORMATION
  Report Type: Spontaneous
  Country: US (occurrence: US)
  Receive Date: 20151214
  Receipt Date: 20170120
  Transmission Date: 20170428
  Serious: Yes (Other)
  Sender: FDA-Public Use
  Company Number: US-BAYER-2015-484318

PATIENT
  Age: 40 Year
  Sex: Female
  Weight: 56.69 kg

DRUGS (4)
  1. AVELOX [Suspect]
     Active Substance: MOXIFLOXACIN HYDROCHLORIDE
     Indication: TOOTH INFECTION
     Dosage: 400 MG, UNK
     Dates: start: 20120520
  2. AVELOX [Suspect]
     Active Substance: MOXIFLOXACIN HYDROCHLORIDE
     Indication: TOOTH INFECTION
     Dosage: 400 MG, UNK
     Dates: start: 201205
  3. CYMBALTA [Concomitant]
     Active Substance: DULOXETINE HYDROCHLORIDE
     Indication: MYALGIA
     Dosage: 30 MG, QD
     Dates: start: 201209
  4. CABERGOLINE. [Concomitant]
     Active Substance: CABERGOLINE
     Indication: NEOPLASM PROPHYLAXIS
     Dosage: 0.5 MG, BID

REACTIONS (19)
  - Ear pain [None]
  - Nasopharyngitis [None]
  - Erythema [None]
  - Ear discomfort [None]
  - Fatigue [Not Recovered/Not Resolved]
  - Burning sensation [Not Recovered/Not Resolved]
  - Inflammation [None]
  - Paraesthesia [Not Recovered/Not Resolved]
  - Muscular weakness [None]
  - General physical health deterioration [None]
  - Anxiety [None]
  - Drug ineffective [None]
  - Neuropathy peripheral [Not Recovered/Not Resolved]
  - Emotional distress [None]
  - Cough [None]
  - Hypoaesthesia [Not Recovered/Not Resolved]
  - Tympanic membrane disorder [None]
  - Myalgia [None]
  - Nasal congestion [None]

NARRATIVE: CASE EVENT DATE: 20120520
